FAERS Safety Report 16805251 (Version 1)
Quarter: 2019Q3

REPORT INFORMATION
  Report Type: Spontaneous
  Country: US (occurrence: US)
  Receive Date: 20190724
  Receipt Date: 20190724
  Transmission Date: 20191005
  Serious: No
  Sender: FDA-Public Use
  Company Number: None

PATIENT

DRUGS (2)
  1. DEXMEDETOMIDINE 200 MCG/2 ML [Suspect]
     Active Substance: DEXMEDETOMIDINE
  2. DEXMEDETOMIDINE 200 MCG/2ML [Suspect]
     Active Substance: DEXMEDETOMIDINE

REACTIONS (2)
  - Product use complaint [None]
  - Product label confusion [None]
